APPROVED DRUG PRODUCT: DESMOPRESSIN ACETATE
Active Ingredient: DESMOPRESSIN ACETATE
Strength: 0.2MG
Dosage Form/Route: TABLET;ORAL
Application: A210371 | Product #002 | TE Code: AB
Applicant: ABHAI LLC
Approved: Jan 28, 2019 | RLD: No | RS: No | Type: RX